FAERS Safety Report 24551669 (Version 3)
Quarter: 2025Q2

REPORT INFORMATION
  Report Type: Report from Study
  Country: CH (occurrence: CH)
  Receive Date: 20241026
  Receipt Date: 20250426
  Transmission Date: 20250717
  Serious: Yes (Hospitalization)
  Sender: ABBVIE
  Company Number: CH-ABBVIE-5975335

PATIENT
  Age: 26 Year
  Sex: Female
  Weight: 83 kg

DRUGS (11)
  1. UPADACITINIB [Suspect]
     Active Substance: UPADACITINIB
     Indication: Dermatitis atopic
     Route: 048
     Dates: start: 20231229, end: 20240305
  2. UPADACITINIB [Suspect]
     Active Substance: UPADACITINIB
     Indication: Dermatitis atopic
     Route: 048
     Dates: start: 20240311, end: 20240420
  3. UPADACITINIB [Suspect]
     Active Substance: UPADACITINIB
     Indication: Dermatitis atopic
     Route: 048
     Dates: start: 20240426, end: 20240707
  4. UPADACITINIB [Suspect]
     Active Substance: UPADACITINIB
     Indication: Dermatitis atopic
     Route: 048
     Dates: start: 20240716, end: 20241010
  5. SYMBICORT [Concomitant]
     Active Substance: BUDESONIDE\FORMOTEROL FUMARATE DIHYDRATE
     Indication: Asthma
     Dosage: 200/6 UG
     Route: 055
     Dates: start: 2013
  6. BILASTINE [Concomitant]
     Active Substance: BILASTINE
     Indication: Dermatitis atopic
     Route: 048
     Dates: start: 20240527
  7. TELFASTIN [Concomitant]
     Indication: Rhinitis allergic
     Route: 048
     Dates: start: 20240912
  8. PANTOPRAZOLE SODIUM [Concomitant]
     Active Substance: PANTOPRAZOLE SODIUM
     Indication: Gastrointestinal disorder prophylaxis
     Route: 048
     Dates: start: 20240421
  9. MOMETASONE FUROATE [Concomitant]
     Active Substance: MOMETASONE FUROATE
     Indication: Dermatitis atopic
     Dosage: 2 FINGERTIP UNIT
     Route: 061
     Dates: start: 20240527, end: 20240605
  10. MOMETASONE FUROATE [Concomitant]
     Active Substance: MOMETASONE FUROATE
     Indication: Dermatitis atopic
     Dosage: 2 FINGERTIP UNIT
     Route: 061
     Dates: start: 20240606, end: 20240612
  11. MOMETASONE FUROATE [Concomitant]
     Active Substance: MOMETASONE FUROATE
     Indication: Dermatitis atopic
     Route: 061
     Dates: start: 20240613

REACTIONS (1)
  - Osteoarthritis [Recovered/Resolved]

NARRATIVE: CASE EVENT DATE: 20241018
